FAERS Safety Report 4445320-X (Version None)
Quarter: 2004Q3

REPORT INFORMATION
  Report Type: 
  Country: None (occurrence: None)
  Receive Date: 20040730
  Receipt Date: 20040527
  Transmission Date: 20050211
  Serious: Yes (Hospitalization)
  Sender: FDA-Public Use
  Company Number: PHEH2004US05881

PATIENT
  Age: 74 Year
  Sex: Male

DRUGS (6)
  1. GLEEVEC [Suspect]
     Indication: CHRONIC MYELOID LEUKAEMIA
     Dosage: 400 MG, QD, ORAL
     Route: 048
     Dates: start: 20040401, end: 20040517
  2. LOTREL [Concomitant]
  3. DIOVAN ^NORVARTIS^ [Concomitant]
  4. PRILOSEC [Concomitant]
  5. ZYRTEC [Concomitant]
  6. AVANDIA [Concomitant]

REACTIONS (5)
  - ASTHENIA [None]
  - DYSPNOEA [None]
  - JOINT SWELLING [None]
  - NAUSEA [None]
  - RED BLOOD CELL COUNT DECREASED [None]
